FAERS Safety Report 18314043 (Version 1)
Quarter: 2020Q3

REPORT INFORMATION
  Report Type: Spontaneous
  Country: BR (occurrence: BR)
  Receive Date: 20200925
  Receipt Date: 20200925
  Transmission Date: 20201103
  Serious: Yes (Hospitalization, Other)
  Sender: FDA-Public Use
  Company Number: BR-DSJP-DSE-2020-127337AA

PATIENT
  Age: 38 Year
  Sex: Male

DRUGS (2)
  1. LIXIANA 60MG [Suspect]
     Active Substance: EDOXABAN TOSYLATE
     Indication: DEEP VEIN THROMBOSIS
     Dosage: 60 MG
     Route: 065
     Dates: start: 2019, end: 2020
  2. LOXONIN [LOXOPROFEN SODIUM DIHYDRATE] [Suspect]
     Active Substance: LOXOPROFEN SODIUM DIHYDRATE
     Indication: DEEP VEIN THROMBOSIS
     Dosage: 60 MG
     Route: 065
     Dates: start: 2020, end: 2020

REACTIONS (3)
  - Wrong product administered [Recovered/Resolved]
  - Deep vein thrombosis [Recovering/Resolving]
  - Product dispensing error [Recovered/Resolved]

NARRATIVE: CASE EVENT DATE: 2020
